FAERS Safety Report 12801959 (Version 2)
Quarter: 2016Q4

REPORT INFORMATION
  Report Type: Report from Study
  Country: US (occurrence: US)
  Receive Date: 20161003
  Receipt Date: 20161207
  Transmission Date: 20170207
  Serious: Yes (Hospitalization, Other)
  Sender: FDA-Public Use
  Company Number: US-ROCHE-1537735

PATIENT
  Age: 56 Year
  Sex: Female
  Weight: 84.78 kg

DRUGS (5)
  1. BEVACIZUMAB [Suspect]
     Active Substance: BEVACIZUMAB
     Indication: OVARIAN EPITHELIAL CANCER
     Dosage: LAST ADMINISTERED DATE 05/JAN/2015
     Route: 042
  2. VELIPARIB [Suspect]
     Active Substance: VELIPARIB
     Indication: OVARIAN EPITHELIAL CANCER
     Dosage: LAST ADMINISTERED DATE 09/JAN/2015?LAST ADMINISTERED DATE 02/APR/2015??LAST ADMINISTERED DATE 02/APR
     Route: 048
  3. PACLITAXEL. [Suspect]
     Active Substance: PACLITAXEL
     Indication: OVARIAN EPITHELIAL CANCER
     Dosage: LAST ADMINISTERED DATE 05/JAN/2015?LAST ADMINISTERED DATE: 03/MAR/2015
     Route: 042
  4. BEVACIZUMAB [Suspect]
     Active Substance: BEVACIZUMAB
     Dosage: LAST ADMINISTERED DATE 02/APR/2015
     Route: 042
  5. CARBOPLATIN. [Suspect]
     Active Substance: CARBOPLATIN
     Indication: OVARIAN EPITHELIAL CANCER
     Dosage: AUC = 6 IVLAST ADMINISTERED DATE 05/JAN/2015?LAST ADMINISTERED DATE 05/JAN/2015?LAST ADMINISTERED DA
     Route: 042

REACTIONS (17)
  - Upper respiratory tract infection [Recovering/Resolving]
  - Hypokalaemia [Unknown]
  - Embolism [Recovering/Resolving]
  - Anaemia [Recovering/Resolving]
  - Dyspnoea [Recovering/Resolving]
  - Dehydration [Recovering/Resolving]
  - Hypokalaemia [Recovered/Resolved]
  - Dizziness [Recovering/Resolving]
  - Nausea [Recovered/Resolved]
  - Dyspnoea [Unknown]
  - Fatigue [Recovering/Resolving]
  - White blood cell count decreased [Recovering/Resolving]
  - Neutrophil count decreased [Recovering/Resolving]
  - Vomiting [Recovered/Resolved]
  - Embolism [Recovering/Resolving]
  - Hyponatraemia [Unknown]
  - Hypophosphataemia [Unknown]

NARRATIVE: CASE EVENT DATE: 20141030
